FAERS Safety Report 8577369-X (Version None)
Quarter: 2012Q3

REPORT INFORMATION
  Report Type: 
  Country: None (occurrence: None)
  Receive Date: 20120807
  Receipt Date: 20120716
  Transmission Date: 20120928
  Serious: Yes (Other)
  Sender: FDA-Public Use
  Company Number: US-ABBOTT-12P-163-0944149-00

PATIENT
  Sex: Female
  Weight: 65.104 kg

DRUGS (2)
  1. SYNTHROID [Suspect]
     Dates: end: 20120531
  2. SYNTHROID [Suspect]
     Indication: HYPOTHYROIDISM
     Dates: start: 19970501

REACTIONS (1)
  - ATRIAL FIBRILLATION [None]
